FAERS Safety Report 13015034 (Version 1)
Quarter: 2016Q4

REPORT INFORMATION
  Report Type: Spontaneous
  Country: US (occurrence: US)
  Receive Date: 20161210
  Receipt Date: 20161210
  Transmission Date: 20170207
  Serious: Yes (Other)
  Sender: FDA-Public Use
  Company Number: US-AMGEN-USASP2016171785

PATIENT
  Age: 51 Year
  Sex: Female

DRUGS (10)
  1. PROAIR HFA [Concomitant]
     Active Substance: ALBUTEROL SULFATE
     Dosage: UNK
     Dates: start: 2016
  2. FLUTICASONE [Concomitant]
     Active Substance: FLUTICASONE\FLUTICASONE PROPIONATE
     Dosage: UNK
     Dates: start: 2016
  3. CALCIUM + VITAMIN D3 [Concomitant]
     Active Substance: CALCIUM CARBONATE\CHOLECALCIFEROL
     Dosage: UNK
     Dates: start: 2016
  4. FLOVENT [Concomitant]
     Active Substance: FLUTICASONE PROPIONATE
     Dosage: UNK
  5. ENBREL [Suspect]
     Active Substance: ETANERCEPT
     Indication: LUPUS-LIKE SYNDROME
     Dosage: 50 MG, QWK
     Route: 065
     Dates: start: 201608
  6. BYSTOLIC [Concomitant]
     Active Substance: NEBIVOLOL HYDROCHLORIDE
     Dosage: UNK
     Dates: start: 2016
  7. BENADRYL [Concomitant]
     Active Substance: DIPHENHYDRAMINE HYDROCHLORIDE
     Dosage: UNK
     Dates: start: 2016
  8. ENBREL [Suspect]
     Active Substance: ETANERCEPT
     Indication: RHEUMATOID ARTHRITIS
     Dosage: 50 MG, QWK
     Route: 065
     Dates: start: 201606
  9. AMITRIPTYLINE [Concomitant]
     Active Substance: AMITRIPTYLINE
     Dosage: UNK
     Dates: start: 2016
  10. PREDNISONE. [Concomitant]
     Active Substance: PREDNISONE
     Dosage: UNK UNK, AS NECESSARY
     Dates: start: 2016

REACTIONS (6)
  - Injection site haemorrhage [Unknown]
  - Back pain [Unknown]
  - Injection site pain [Unknown]
  - Cough [Unknown]
  - Lupus-like syndrome [Unknown]
  - Injection site reaction [Unknown]

NARRATIVE: CASE EVENT DATE: 2016
